FAERS Safety Report 4462134-5 (Version None)
Quarter: 2004Q3

REPORT INFORMATION
  Report Type: 
  Country: None (occurrence: None)
  Receive Date: 20040927
  Receipt Date: 20040927
  Transmission Date: 20050211
  Serious: Yes (Other)
  Sender: FDA-Public Use
  Company Number: None

PATIENT
  Age: 38 Year
  Sex: Male
  Weight: 61.8 kg

DRUGS (1)
  1. WELLBUTRIN XL [Suspect]
     Dosage: 450MG  QD  ORAL
     Route: 048
     Dates: start: 20040913, end: 20040922

REACTIONS (1)
  - CONVULSION [None]
